FAERS Safety Report 13724870 (Version 4)
Quarter: 2020Q1

REPORT INFORMATION
  Report Type: Spontaneous
  Country: US (occurrence: US)
  Receive Date: 20170706
  Receipt Date: 20200326
  Transmission Date: 20200409
  Serious: Yes (Hospitalization, Other)
  Sender: FDA-Public Use
  Company Number: US-BRISTOL-MYERS SQUIBB COMPANY-BMS-2017-059417

PATIENT
  Sex: Male

DRUGS (2)
  1. OPDIVO [Suspect]
     Active Substance: NIVOLUMAB
     Indication: SMALL CELL CARCINOMA
     Dosage: 1 MG/KG, UNK
     Route: 042
     Dates: start: 20161110, end: 20170109
  2. YERVOY [Suspect]
     Active Substance: IPILIMUMAB
     Indication: SMALL CELL CARCINOMA
     Dosage: 3 MG/KG, UNK
     Route: 042
     Dates: start: 20161110, end: 20170109

REACTIONS (4)
  - Brachial plexopathy [Unknown]
  - Adrenal insufficiency [Unknown]
  - Intentional product use issue [Unknown]
  - Multifocal motor neuropathy [Recovering/Resolving]
